FAERS Safety Report 15809520 (Version 5)
Quarter: 2020Q1

REPORT INFORMATION
  Report Type: Report from Study
  Country: US (occurrence: US)
  Receive Date: 20190111
  Receipt Date: 20200113
  Transmission Date: 20200409
  Serious: No
  Sender: FDA-Public Use
  Company Number: US-INCYTE CORPORATION-2018IN012371

PATIENT

DRUGS (6)
  1. JAKAFI [Suspect]
     Active Substance: RUXOLITINIB
     Dosage: 10 MG (2 5 MG TABS) QAM, 5 MG QPM (MWF); 5 MG BID (OTHER 4 DAYS)
     Route: 048
  2. JAKAFI [Suspect]
     Active Substance: RUXOLITINIB
     Dosage: 5 MILLIGRAM (MWF: 2 TABS QAM, 1 TAB QPM; TTHSSU: 1 TAB BID)
     Route: 048
  3. JAKAFI [Suspect]
     Active Substance: RUXOLITINIB
     Indication: MYELOFIBROSIS
     Dosage: 20MG QD TUE AND SAT, 20MG BID OTHER DAYS
     Route: 048
     Dates: start: 20171001
  4. JAKAFI [Suspect]
     Active Substance: RUXOLITINIB
     Dosage: 5 MILLIGRAM (MWF: 2 TABS QAM, 1 TAB QPM; TUTHSASU: 1 TAB BID)
     Route: 065
  5. JAKAFI [Suspect]
     Active Substance: RUXOLITINIB
     Indication: POLYCYTHAEMIA VERA
     Dosage: 5 MILLIGRAM, BID
     Route: 048
  6. ASPIRIN. [Concomitant]
     Active Substance: ASPIRIN
     Indication: PRODUCT USED FOR UNKNOWN INDICATION
     Route: 065

REACTIONS (17)
  - Blood count abnormal [Unknown]
  - Intentional product use issue [Unknown]
  - Pruritus [Unknown]
  - Stress [Unknown]
  - Blood potassium increased [Recovering/Resolving]
  - Impaired healing [Not Recovered/Not Resolved]
  - Abdominal distension [Unknown]
  - Inappropriate schedule of product administration [Unknown]
  - Alopecia [Unknown]
  - Dry skin [Unknown]
  - Myalgia [Unknown]
  - Tooth injury [Unknown]
  - Limb injury [Not Recovered/Not Resolved]
  - Skin ulcer [Unknown]
  - Product dose omission [Unknown]
  - Skin discolouration [Unknown]
  - Visual impairment [Unknown]
